FAERS Safety Report 4899705-8 (Version None)
Quarter: 2006Q1

REPORT INFORMATION
  Report Type: 
  Country: None (occurrence: None)
  Receive Date: 20060118
  Receipt Date: 20050615
  Transmission Date: 20060701
  Serious: Yes (Hospitalization)
  Sender: FDA-Public Use
  Company Number: 2005001130

PATIENT
  Age: 54 Year
  Sex: Male

DRUGS (5)
  1. TARCEVA [Suspect]
     Indication: NON-SMALL CELL LUNG CANCER
     Dosage: 150 MG (QD), ORAL
     Route: 048
     Dates: start: 20050604, end: 20050608
  2. DICYCLOVIR [Concomitant]
  3. TEQUIN [Concomitant]
  4. HYDROCODONE BITARTRATE [Concomitant]
  5. ACIPHEX [Concomitant]

REACTIONS (1)
  - RASH [None]
